FAERS Safety Report 17641053 (Version 11)
Quarter: 2021Q4

REPORT INFORMATION
  Report Type: Report from Study
  Country: GB (occurrence: GB)
  Receive Date: 20200408
  Receipt Date: 20211227
  Transmission Date: 20220304
  Serious: Yes (Death, Hospitalization)
  Sender: FDA-Public Use
  Company Number: GB-CELLTRION INC.-2020GB021090

PATIENT

DRUGS (53)
  1. TRASTUZUMAB [Suspect]
     Active Substance: TRASTUZUMAB
     Indication: Breast cancer metastatic
     Dosage: 588 MILLIGRAM, Q3WK (DRUG DISCONTINUED DUE TO DISEASE PROGRESSION FURTHER ANTICANCER TREATMENT)
     Route: 042
     Dates: start: 20180503, end: 20181115
  2. TRASTUZUMAB [Suspect]
     Active Substance: TRASTUZUMAB
     Dosage: 882 MILLIGRAM, Q3WK (DOSE MODIFIED)
     Route: 042
     Dates: start: 20180116, end: 20180116
  3. TRASTUZUMAB [Suspect]
     Active Substance: TRASTUZUMAB
     Dosage: 588 MILLIGRAM, Q3WK
     Route: 042
     Dates: start: 20190118
  4. LETROZOLE [Suspect]
     Active Substance: LETROZOLE
     Indication: Breast cancer metastatic
     Dosage: 2.5 MILLIGRAM, QD
     Route: 048
     Dates: start: 20171128
  5. PERTUZUMAB [Suspect]
     Active Substance: PERTUZUMAB
     Indication: Breast cancer metastatic
     Dosage: 840 MG, Q3WK
     Route: 042
     Dates: start: 20180116, end: 20180116
  6. PERTUZUMAB [Suspect]
     Active Substance: PERTUZUMAB
     Dosage: 420 MG, Q3WK (DRUG DISCONTINUED DUE TO DISEASE PROGRESSION FURTHER ANTICANCER TREATMENT)
     Route: 042
     Dates: start: 20180503, end: 20181115
  7. PERTUZUMAB [Suspect]
     Active Substance: PERTUZUMAB
     Dosage: 420 MG, Q3WK (DRUG DISCONTINUED DUE TO DISEASE PROGRESSION FURTHER ANTICANCER TREATMENT) MOST RECENT
     Route: 042
     Dates: start: 20190118
  8. CAPECITABINE [Suspect]
     Active Substance: CAPECITABINE
     Indication: Breast cancer metastatic
     Dosage: 1800 MG, Q2WEEKS
     Route: 048
     Dates: start: 20191011, end: 20191127
  9. CAPECITABINE [Suspect]
     Active Substance: CAPECITABINE
     Dosage: 1800 MG PER 0.5 DAY (DOSE MODIFIED)
     Route: 048
     Dates: start: 20191011, end: 20191127
  10. CAPECITABINE [Suspect]
     Active Substance: CAPECITABINE
     Dosage: 2000 MG PER 0.5 DAY (MOST RECENT DOSE PRIOR TO AE 14/FEB/2020)
     Route: 048
     Dates: start: 20191204
  11. DENOSUMAB [Suspect]
     Active Substance: DENOSUMAB
     Indication: Product used for unknown indication
     Dosage: 120 MG, MOST RECENT DOSE PRIOR TO AE 14/FEB/2020); PHARMACEUTICAL DOSE FORM: 231
     Route: 058
     Dates: start: 20180503
  12. ROSUVASTATIN [Concomitant]
     Active Substance: ROSUVASTATIN
     Dosage: 5 MILLIGRAM, QD
     Route: 048
     Dates: end: 2019
  13. VANCOMYCIN [Concomitant]
     Active Substance: VANCOMYCIN
     Dosage: 125 MILLIGRAM, 0.25 DAY
     Route: 050
     Dates: start: 20200302, end: 20200316
  14. LEVETIRACETAM [Concomitant]
     Active Substance: LEVETIRACETAM
     Indication: Seizure
     Dosage: 1500 MILLIGRAM, 0.5 DAY
     Route: 048
  15. LEVETIRACETAM [Concomitant]
     Active Substance: LEVETIRACETAM
     Dosage: 250 MG
     Route: 048
  16. DEXAMETHASONE [Concomitant]
     Active Substance: DEXAMETHASONE
     Indication: Metastases to central nervous system
     Dosage: 2 MILLIGRAM, QD
     Route: 048
     Dates: start: 20190425, end: 2019
  17. DEXAMETHASONE [Concomitant]
     Active Substance: DEXAMETHASONE
     Dosage: 8 MILLIGRAM, 0.5 DAY
     Route: 048
     Dates: start: 202005
  18. DEXAMETHASONE [Concomitant]
     Active Substance: DEXAMETHASONE
     Dosage: 8 MILLIGRAM, 0.5 DAY
     Route: 048
     Dates: start: 201812
  19. DEXAMETHASONE [Concomitant]
     Active Substance: DEXAMETHASONE
     Dosage: 4 MILLIGRAM, 0.5 DAY
     Route: 048
     Dates: start: 20190110, end: 2019
  20. DEXAMETHASONE [Concomitant]
     Active Substance: DEXAMETHASONE
     Dosage: 6 MILLIGRAM, 0.5 DAY
     Route: 048
     Dates: start: 20190109
  21. DEXAMETHASONE [Concomitant]
     Active Substance: DEXAMETHASONE
     Dosage: 4 MILLIGRAM, 0.25 DAY
     Route: 048
     Dates: start: 20190417, end: 20190424
  22. ONDANSETRON [Concomitant]
     Active Substance: ONDANSETRON
     Dosage: 4 MILLIGRAM, 0.33 DAY
     Route: 048
     Dates: start: 2019
  23. COCODAMOL [Concomitant]
     Active Substance: ACETAMINOPHEN\CODEINE PHOSPHATE
     Dosage: 30 MILLIGRAM
     Route: 048
     Dates: end: 20200512
  24. NIFEDIPINE [Concomitant]
     Active Substance: NIFEDIPINE
     Dosage: 60 MILLIGRAM, QD
     Route: 048
     Dates: end: 2018
  25. LACOSAMIDE [Concomitant]
     Active Substance: LACOSAMIDE
     Dosage: 100 MILLIGRAM, 0.5 DAY
     Route: 048
     Dates: start: 20200519
  26. LACOSAMIDE [Concomitant]
     Active Substance: LACOSAMIDE
     Dosage: 50 MILLIGRAM, 0.5 DAY
     Route: 048
     Dates: start: 20200512, end: 20200519
  27. FOLIC ACID [Concomitant]
     Active Substance: FOLIC ACID
     Dosage: 5 MILLIGRAM, QD
     Route: 048
     Dates: start: 20160211
  28. POTASSIUM CHLORIDE\SODIUM CHLORIDE [Concomitant]
     Active Substance: POTASSIUM CHLORIDE\SODIUM CHLORIDE
     Indication: Hypokalaemia
     Dosage: UNK, QD (1 OTHER)
     Route: 042
     Dates: start: 20190329, end: 20190401
  29. ASPIRIN [Concomitant]
     Active Substance: ASPIRIN
     Dosage: 75 MILLIGRAM, QD
     Route: 048
     Dates: start: 2019, end: 2019
  30. SIMVASTATIN [Concomitant]
     Active Substance: SIMVASTATIN
     Dosage: 20 MILLIGRAM, QD
     Route: 048
     Dates: start: 2019
  31. HYDROCORTISONE [Concomitant]
     Active Substance: HYDROCORTISONE
     Dosage: 0.5 %
     Route: 061
     Dates: start: 20191025, end: 2019
  32. LANSOPRAZOLE [Concomitant]
     Active Substance: LANSOPRAZOLE
     Indication: Metastases to central nervous system
     Dosage: 30 MILLIGRAM, QD
     Route: 048
     Dates: start: 201812
  33. PROCHLORPERAZINE [Concomitant]
     Active Substance: PROCHLORPERAZINE
     Dosage: 3 MILLIGRAM, 0.5 DAY
     Dates: start: 2020
  34. NYSTATIN [Concomitant]
     Active Substance: NYSTATIN
     Dosage: 1 MILLIGRAM, EVERY 4 DAY
     Route: 048
     Dates: start: 20200505, end: 20200511
  35. POTASSIUM CHLORIDE [Concomitant]
     Active Substance: POTASSIUM CHLORIDE
     Indication: Hypokalaemia
     Dosage: 1 OTHER, QD
     Route: 042
     Dates: start: 20190329, end: 20190401
  36. METFORMIN [Concomitant]
     Active Substance: METFORMIN HYDROCHLORIDE
     Dosage: 500 MILLIGRAM, QD
     Route: 048
     Dates: start: 2018, end: 2018
  37. SERTRALINE [Concomitant]
     Active Substance: SERTRALINE HYDROCHLORIDE
     Dosage: 50 MILLIGRAM, QD
     Route: 048
  38. CLOTRIMAZOLE [Concomitant]
     Active Substance: CLOTRIMAZOLE
     Dosage: 1 PERCENT, , 0.5 DAY
     Route: 061
     Dates: start: 202002
  39. GLYCOPYRROLATE [Concomitant]
     Active Substance: GLYCOPYRROLATE
     Dosage: 400 MICROGRAM
     Route: 058
     Dates: start: 20190330
  40. NITROFURANTOIN [Concomitant]
     Active Substance: NITROFURANTOIN
     Indication: Urinary tract infection
     Dosage: 50 MG,  0.25 DAY
     Route: 048
     Dates: start: 20190403, end: 20190405
  41. MIDAZOLAM [Concomitant]
     Active Substance: MIDAZOLAM
     Dosage: 2.5 MG
     Route: 058
  42. MIDAZOLAM [Concomitant]
     Active Substance: MIDAZOLAM
     Dosage: 10 MG
     Route: 050
     Dates: start: 2020
  43. MIDAZOLAM [Concomitant]
     Active Substance: MIDAZOLAM
     Dosage: 30 MG
     Route: 058
     Dates: start: 2020
  44. MIDAZOLAM [Concomitant]
     Active Substance: MIDAZOLAM
     Dosage: 30 MG
     Route: 058
     Dates: start: 2020
  45. MORPHINE SULFATE [Concomitant]
     Active Substance: MORPHINE SULFATE
     Dosage: 2.5 MG
     Route: 058
     Dates: start: 20190330
  46. CEPHALEXIN [Concomitant]
     Active Substance: CEPHALEXIN
     Indication: Urinary tract infection
     Dosage: UNK
     Route: 048
     Dates: start: 20190208, end: 2019
  47. AMOXICILLIN [Concomitant]
     Active Substance: AMOXICILLIN
     Indication: Urinary tract infection
     Dosage: 500 MG, 0.33 DAY
     Route: 042
     Dates: start: 20190330, end: 20190401
  48. CYCLIZINE [Concomitant]
     Active Substance: CYCLIZINE
     Dosage: 50 MG, 0.33 DAY
     Route: 048
     Dates: start: 2019, end: 20190403
  49. METRONIDAZOLE [Concomitant]
     Active Substance: METRONIDAZOLE
     Indication: Diarrhoea
     Dosage: 400 MILLIGRAM, 0.33 DAY
     Route: 048
     Dates: start: 20190401, end: 20190403
  50. SODIUM CHLORIDE [Concomitant]
     Active Substance: SODIUM CHLORIDE
     Indication: Hypokalaemia
     Dosage: 1 OTHER, QD
     Route: 042
     Dates: start: 20190329, end: 20190401
  51. ACETAMINOPHEN [Concomitant]
     Active Substance: ACETAMINOPHEN
     Dosage: 500 MG
     Route: 048
  52. ENOXAPARIN [Concomitant]
     Active Substance: ENOXAPARIN
     Dosage: 80 MG, QD
     Route: 058
     Dates: start: 202002
  53. SODIUM CHLORIDE [Concomitant]
     Active Substance: SODIUM CHLORIDE
     Dosage: UNK

REACTIONS (2)
  - Disease progression [Fatal]
  - Dyspnoea [Recovered/Resolved]

NARRATIVE: CASE EVENT DATE: 20200224
